FAERS Safety Report 15614401 (Version 1)
Quarter: 2018Q4

REPORT INFORMATION
  Report Type: Spontaneous
  Country: AR (occurrence: AR)
  Receive Date: 20181113
  Receipt Date: 20181113
  Transmission Date: 20190205
  Serious: Yes (Other)
  Sender: FDA-Public Use
  Company Number: AR-009507513-1811ARG003691

PATIENT
  Age: 54 Year
  Sex: Male

DRUGS (1)
  1. KEYTRUDA [Suspect]
     Active Substance: PEMBROLIZUMAB
     Indication: LUNG ADENOCARCINOMA STAGE III
     Route: 041

REACTIONS (7)
  - Positron emission tomogram abnormal [Unknown]
  - Atelectasis [Unknown]
  - Bronchiectasis [Unknown]
  - Lung consolidation [Unknown]
  - Pleural effusion [Unknown]
  - Lymphadenopathy [Unknown]
  - Arteritis [Unknown]

NARRATIVE: CASE EVENT DATE: 20180606
